FAERS Safety Report 9837521 (Version 1)
Quarter: 2014Q1

REPORT INFORMATION
  Report Type: Spontaneous
  Country: US (occurrence: US)
  Receive Date: 20140123
  Receipt Date: 20140123
  Transmission Date: 20141002
  Serious: Yes (Other)
  Sender: FDA-Public Use
  Company Number: PHEH2014US001227

PATIENT
  Age: 63 Year
  Sex: Male

DRUGS (4)
  1. EXFORGE [Suspect]
     Dosage: 1 DF (320 MG VALS, 5 MG AMLO), QD
  2. CENTRUM SILVER [Concomitant]
     Dosage: UNK UKN, QD
  3. ZOCOR [Concomitant]
     Dosage: UNK UKN, UNK
  4. ZOMIG [Concomitant]
     Dosage: UNK UKN, UNK

REACTIONS (3)
  - Plasma cell myeloma [Unknown]
  - Metastases to lymph nodes [Unknown]
  - Neoplasm [Unknown]
